FAERS Safety Report 24869264 (Version 2)
Quarter: 2025Q1

REPORT INFORMATION
  Report Type: Spontaneous
  Country: CZ (occurrence: CZ)
  Receive Date: 20250121
  Receipt Date: 20250124
  Transmission Date: 20250408
  Serious: Yes (Hospitalization, Other)
  Sender: GILEAD
  Company Number: CZ-GILEAD-2025-0700646

PATIENT
  Age: 74 Year
  Sex: Female

DRUGS (4)
  1. YESCARTA [Suspect]
     Active Substance: AXICABTAGENE CILOLEUCEL
     Indication: Product used for unknown indication
     Route: 065
     Dates: start: 20240611, end: 20240611
  2. CYTARABINE [Concomitant]
     Active Substance: CYTARABINE
     Dates: start: 20240606
  3. FLUDARABINE [Concomitant]
     Active Substance: FLUDARABINE PHOSPHATE
     Dates: start: 20240606
  4. ANAKINRA [Concomitant]
     Active Substance: ANAKINRA

REACTIONS (4)
  - Stress cardiomyopathy [Unknown]
  - Cytokine release syndrome [Unknown]
  - Immune effector cell-associated neurotoxicity syndrome [Unknown]
  - Hypofibrinogenaemia [Unknown]

NARRATIVE: CASE EVENT DATE: 20240617
